FAERS Safety Report 5490438-6 (Version None)
Quarter: 2007Q4

REPORT INFORMATION
  Report Type: 
  Country: None (occurrence: None)
  Receive Date: 20071017
  Receipt Date: 20071017
  Transmission Date: 20080405
  Serious: Yes (Hospitalization)
  Sender: FDA-Public Use
  Company Number: None

PATIENT
  Sex: Female
  Weight: 67.4 kg

DRUGS (1)
  1. TAXOL [Suspect]
     Dosage: 15 MG
     Dates: end: 20070929

REACTIONS (3)
  - HYPOTENSION [None]
  - PRURITUS [None]
  - TACHYCARDIA [None]
